FAERS Safety Report 9344057 (Version 1)
Quarter: 2013Q2

REPORT INFORMATION
  Report Type: Spontaneous
  Country: US (occurrence: US)
  Receive Date: 20130612
  Receipt Date: 20130612
  Transmission Date: 20140414
  Serious: Yes (Other)
  Sender: FDA-Public Use
  Company Number: US-BRISTOL-MYERS SQUIBB COMPANY-18994418

PATIENT
  Age: 6 Decade
  Sex: Female

DRUGS (1)
  1. BYDUREON [Suspect]
     Dates: start: 201304

REACTIONS (1)
  - Pancreatitis [Unknown]
